FAERS Safety Report 8430118-8 (Version None)
Quarter: 2012Q2

REPORT INFORMATION
  Report Type: 
  Country: None (occurrence: None)
  Receive Date: 20120612
  Receipt Date: 20120605
  Transmission Date: 20120825
  Serious: Yes (Other)
  Sender: FDA-Public Use
  Company Number: US-ROCHE-1075579

PATIENT
  Sex: Female

DRUGS (3)
  1. RIBASPHERE [Suspect]
     Indication: HEPATITIS C
     Route: 048
     Dates: start: 20110830
  2. PEGASYS [Suspect]
     Indication: HEPATITIS C
     Route: 058
     Dates: start: 20110830
  3. INCIVEK [Suspect]
     Indication: HEPATITIS C
     Dates: start: 20110830, end: 20111122

REACTIONS (6)
  - IRRITABILITY [None]
  - DEPRESSION [None]
  - HEPATITIS C [None]
  - FEELING ABNORMAL [None]
  - AMNESIA [None]
  - PERSONALITY CHANGE [None]
